FAERS Safety Report 7217485-8 (Version None)
Quarter: 2011Q1

REPORT INFORMATION
  Report Type: 
  Country: None (occurrence: None)
  Receive Date: 20110110
  Receipt Date: 20110106
  Transmission Date: 20110831
  Serious: Yes (Death)
  Sender: FDA-Public Use
  Company Number: PHHY2010JP83706

PATIENT
  Sex: Male
  Weight: 63 kg

DRUGS (7)
  1. OLMETEC [Concomitant]
     Dosage: 40 MG, UNK
     Route: 048
  2. CALCIUM CARBONATE [Concomitant]
     Dosage: 6 G, UNK
     Route: 048
  3. TICLOPIDINE HYDROCHLORIDE [Concomitant]
     Dosage: 200 MG, UNK
     Route: 048
  4. ADALAT [Concomitant]
     Dosage: 60 MG, UNK
     Route: 048
  5. RASILEZ [Suspect]
     Indication: HYPERTENSION
     Dosage: 150 MG, UNK
     Route: 048
     Dates: start: 20100222
  6. CARDENALIN [Concomitant]
     Dosage: 4 MG, UNK
     Route: 048
  7. WYTENS [Concomitant]
     Dosage: 4 MG, UNK
     Route: 048

REACTIONS (2)
  - MYOCARDIAL INFARCTION [None]
  - CARDIO-RESPIRATORY ARREST [None]
